FAERS Safety Report 19053774 (Version 3)
Quarter: 2021Q2

REPORT INFORMATION
  Report Type: Spontaneous
  Country: FR (occurrence: FR)
  Receive Date: 20210325
  Receipt Date: 20210608
  Transmission Date: 20210717
  Serious: Yes (Disabling, Other)
  Sender: FDA-Public Use
  Company Number: FR-ADVANZ PHARMA-202103002105

PATIENT

DRUGS (7)
  1. SULFASALAZINE. [Suspect]
     Active Substance: SULFASALAZINE
     Indication: PRODUCT USED FOR UNKNOWN INDICATION
     Dosage: UNK (ALMOST 10 YEARS)
     Route: 065
     Dates: end: 2010
  2. HYDROXYCHLOROQUINE [Suspect]
     Active Substance: HYDROXYCHLOROQUINE
     Indication: RHEUMATOID ARTHRITIS
     Dosage: UNK, PLAQUENIL
     Route: 065
  3. XELJANZ [Suspect]
     Active Substance: TOFACITINIB CITRATE
     Indication: PRODUCT USED FOR UNKNOWN INDICATION
     Dosage: UNK
     Route: 065
     Dates: start: 202001, end: 20200827
  4. SOLUPRED (PREDNISOLONE/METASULFOBENZOATE SODIUM) [Concomitant]
     Active Substance: PREDNISOLONE SODIUM METAZOATE
  5. SOLUPRED (PREDNISOLONE/METASULFOBENZOATE SODIUM) [Suspect]
     Active Substance: PREDNISOLONE SODIUM METAZOATE
     Indication: PRODUCT USED FOR UNKNOWN INDICATION
     Dosage: UNK
     Route: 065
  6. METHOTREXATE. [Suspect]
     Active Substance: METHOTREXATE
     Indication: PRODUCT USED FOR UNKNOWN INDICATION
     Dosage: UNK
     Route: 065
  7. SOLUPRED (PREDNISOLONE/METASULFOBENZOATE SODIUM) [Suspect]
     Active Substance: PREDNISOLONE SODIUM METAZOATE
     Dosage: 15 MG
     Route: 065
     Dates: start: 20210311

REACTIONS (7)
  - Age-related macular degeneration [Unknown]
  - Vision blurred [Unknown]
  - Tendonitis [Unknown]
  - Eye pain [Unknown]
  - Blindness [Unknown]
  - Drug ineffective [Unknown]
  - Limb discomfort [Unknown]
